FAERS Safety Report 20082382 (Version 4)
Quarter: 2022Q2

REPORT INFORMATION
  Report Type: Spontaneous
  Country: JP (occurrence: None)
  Receive Date: 20211117
  Receipt Date: 20220527
  Transmission Date: 20220720
  Serious: Yes (Disabling, Other)
  Sender: FDA-Public Use
  Company Number: 2021A805273

PATIENT
  Age: 26784 Day
  Sex: Female
  Weight: 43 kg

DRUGS (8)
  1. LYNPARZA [Suspect]
     Active Substance: OLAPARIB
     Indication: Ovarian cancer
     Route: 048
     Dates: start: 20210225, end: 20210308
  2. LYNPARZA [Suspect]
     Active Substance: OLAPARIB
     Indication: Ovarian cancer
     Route: 048
     Dates: start: 20210309, end: 20210313
  3. LYNPARZA [Suspect]
     Active Substance: OLAPARIB
     Indication: Ovarian cancer
     Route: 048
     Dates: start: 20210406, end: 20210510
  4. LYNPARZA [Suspect]
     Active Substance: OLAPARIB
     Indication: Ovarian cancer
     Route: 048
     Dates: start: 20210511, end: 20210522
  5. LYNPARZA [Suspect]
     Active Substance: OLAPARIB
     Indication: Ovarian cancer
     Route: 048
     Dates: start: 20210523, end: 20210531
  6. LYNPARZA [Suspect]
     Active Substance: OLAPARIB
     Indication: Ovarian cancer
     Route: 048
     Dates: start: 20210601, end: 20210613
  7. LYNPARZA [Suspect]
     Active Substance: OLAPARIB
     Indication: Ovarian cancer recurrent
     Route: 048
     Dates: start: 20210629, end: 20210826
  8. CORONAVIRUS(SARS-COV-2) VACCINE(RECOMBINANT CHIMPANZEE ADENOVIRUS V... [Concomitant]
     Dosage: DOSE UNKNOWN
     Route: 030

REACTIONS (4)
  - Interstitial lung disease [Recovering/Resolving]
  - Thrombocytopenia [Recovering/Resolving]
  - Nausea [Not Recovered/Not Resolved]
  - Anaemia [Recovered/Resolved]

NARRATIVE: CASE EVENT DATE: 20210324
